FAERS Safety Report 23604403 (Version 2)
Quarter: 2024Q1

REPORT INFORMATION
  Report Type: Spontaneous
  Country: GB (occurrence: GB)
  Receive Date: 20240307
  Receipt Date: 20240314
  Transmission Date: 20240410
  Serious: Yes (Hospitalization, Other)
  Sender: FDA-Public Use
  Company Number: GB-002147023-NVSC2024GB047360

PATIENT
  Sex: Female

DRUGS (1)
  1. TEGRETOL [Suspect]
     Active Substance: CARBAMAZEPINE
     Indication: Trigeminal neuralgia
     Dosage: UNK
     Route: 065

REACTIONS (7)
  - Stevens-Johnson syndrome [Unknown]
  - Blister [Unknown]
  - Rash macular [Unknown]
  - Joint swelling [Unknown]
  - Cough [Unknown]
  - Adverse drug reaction [Unknown]
  - Scar [Unknown]
